FAERS Safety Report 9618012 (Version 1)
Quarter: 2013Q4

REPORT INFORMATION
  Report Type: Report from Study
  Country: BR (occurrence: BR)
  Receive Date: 20131011
  Receipt Date: 20131011
  Transmission Date: 20140711
  Serious: Yes (Other)
  Sender: FDA-Public Use
  Company Number: BR-ROCHE-1287824

PATIENT
  Age: 40 Year
  Sex: Male

DRUGS (3)
  1. CLONAZEPAM [Suspect]
     Indication: PRODUCT USED FOR UNKNOWN INDICATION
     Route: 065
  2. RISPERIDONE [Concomitant]
  3. FLUOXETIN [Concomitant]

REACTIONS (3)
  - Delirium [Unknown]
  - Anxiety [Unknown]
  - Sleep disorder [Unknown]
